FAERS Safety Report 23020074 (Version 1)
Quarter: 2023Q4

REPORT INFORMATION
  Report Type: Spontaneous
  Country: US (occurrence: None)
  Receive Date: 20231002
  Receipt Date: 20231002
  Transmission Date: 20240109
  Serious: Yes (Hospitalization)
  Sender: FDA-Public Use
  Company Number: None

PATIENT
  Sex: Male

DRUGS (3)
  1. ADVATE [Suspect]
     Active Substance: ANTIHEMOPHILIC FACTOR, HUMAN RECOMBINANT
     Indication: Factor VII deficiency
     Dosage: OTHER QUANTITY : 1000 UNITS;?FREQUENCY : AS DIRECTED;?
     Route: 042
     Dates: start: 202212
  2. ADVATE [Suspect]
     Active Substance: ANTIHEMOPHILIC FACTOR, HUMAN RECOMBINANT
     Indication: Factor VIII deficiency
     Dosage: OTHER QUANTITY : 2000 UNITS;?FREQUENCY : AS NEEDED;?
     Route: 042
     Dates: start: 202212
  3. HEMUBRA SDV [Concomitant]

REACTIONS (2)
  - Fibula fracture [None]
  - Haemorrhage [None]

NARRATIVE: CASE EVENT DATE: 20230916
